FAERS Safety Report 4565869-9 (Version None)
Quarter: 2005Q1

REPORT INFORMATION
  Report Type: 
  Country: None (occurrence: None)
  Receive Date: 20050131
  Receipt Date: 20041215
  Transmission Date: 20050727
  Serious: Yes (Hospitalization, Other)
  Sender: FDA-Public Use
  Company Number: US-AMGEN-US103430

PATIENT
  Sex: Female
  Weight: 54.5 kg

DRUGS (11)
  1. EPOGEN [Suspect]
     Indication: DIALYSIS
     Route: 042
  2. COUMADIN [Concomitant]
  3. NIFEDIPINE [Concomitant]
  4. DIGOXIN [Concomitant]
  5. PHOSLO [Concomitant]
  6. NEPHRO-VITE [Concomitant]
  7. GLIPIZIDE [Concomitant]
  8. ZANTAC [Concomitant]
  9. ZEMPLAR (ABBOTT LABORATORIES) [Concomitant]
  10. PROTONIX [Concomitant]
  11. NEURONTIN [Concomitant]

REACTIONS (10)
  - ANTI-ERYTHROPOIETIN ANTIBODY POSITIVE [None]
  - BIOPSY BONE MARROW ABNORMAL [None]
  - BONE MARROW DEPRESSION [None]
  - CHEST PAIN [None]
  - HYPOAESTHESIA [None]
  - LYMPHOCYTOSIS [None]
  - NORMOCHROMIC NORMOCYTIC ANAEMIA [None]
  - PLATELET COUNT DECREASED [None]
  - POLYCHROMASIA [None]
  - THERAPEUTIC RESPONSE DECREASED [None]
